FAERS Safety Report 7830070-X (Version None)
Quarter: 2011Q4

REPORT INFORMATION
  Report Type: 
  Country: None (occurrence: None)
  Receive Date: 20111021
  Receipt Date: 20111019
  Transmission Date: 20120403
  Serious: Yes (Death)
  Sender: FDA-Public Use
  Company Number: US-B.I. PHARMACEUTICALS,INC./RIDGEFIELD-2011-BP-24537BP

PATIENT
  Age: 81 Year
  Sex: Female

DRUGS (13)
  1. EFFEXOR [Concomitant]
     Indication: DEPRESSION
     Dosage: 37.5 MG
     Route: 048
     Dates: end: 20111013
  2. ASPIRIN [Concomitant]
     Dosage: 81 MG
     Route: 048
     Dates: end: 20111013
  3. HEPARIN [Concomitant]
     Route: 058
     Dates: end: 20111012
  4. PRILOSEC [Concomitant]
     Route: 048
     Dates: end: 20111013
  5. LISINOPRIL [Concomitant]
     Indication: HYPERTENSION
     Dosage: 5 MG
     Route: 048
     Dates: end: 20111013
  6. NIFEDIPIPNE XR [Concomitant]
     Dosage: 350 MG
     Route: 048
     Dates: end: 20111013
  7. ZOCOR [Concomitant]
     Indication: BLOOD CHOLESTEROL INCREASED
     Dosage: 20 MG
     Route: 048
     Dates: end: 20111013
  8. PROTONIX [Concomitant]
     Route: 048
     Dates: end: 20111013
  9. PROTONIX [Concomitant]
  10. PRADAXA [Suspect]
     Indication: ATRIAL FIBRILLATION
     Dosage: 300 MG
     Route: 048
     Dates: start: 20111012, end: 20111013
  11. DIGOXIN [Concomitant]
     Dosage: 0.125 MG
     Route: 048
     Dates: start: 20111003, end: 20111013
  12. FERROUS SULFATE TAB [Concomitant]
     Dosage: 675 MG
     Route: 048
     Dates: end: 20111013
  13. NAMENDA [Concomitant]
     Route: 048
     Dates: end: 20111013

REACTIONS (1)
  - HAEMATOCHEZIA [None]
